FAERS Safety Report 20144376 (Version 1)
Quarter: 2021Q4

REPORT INFORMATION
  Report Type: Report from Study
  Country: CA (occurrence: CA)
  Receive Date: 20211203
  Receipt Date: 20211203
  Transmission Date: 20220303
  Serious: Yes (Other)
  Sender: FDA-Public Use
  Company Number: CA-BEH-2021138868

PATIENT
  Age: 20 Year
  Sex: Female
  Weight: 40 kg

DRUGS (7)
  1. HIZENTRA [Suspect]
     Active Substance: HUMAN IMMUNOGLOBULIN G
     Indication: Primary immunodeficiency syndrome
     Dosage: 2 GRAM, QOW
     Route: 050
     Dates: start: 20171127
  2. HIZENTRA [Suspect]
     Active Substance: HUMAN IMMUNOGLOBULIN G
     Dosage: 1 GRAM, QW
     Route: 050
  3. SINTROM [Concomitant]
     Active Substance: ACENOCOUMAROL
  4. CALCIUM [Concomitant]
     Active Substance: CALCIUM
  5. CHOLECALCIFEROL [Concomitant]
     Active Substance: CHOLECALCIFEROL
  6. PREVACID [Concomitant]
     Active Substance: LANSOPRAZOLE
  7. SEPTRA [Concomitant]
     Active Substance: SULFAMETHOXAZOLE\TRIMETHOPRIM

REACTIONS (2)
  - Cerebrovascular accident [Unknown]
  - Visual impairment [Unknown]

NARRATIVE: CASE EVENT DATE: 20210122
